FAERS Safety Report 25476908 (Version 2)
Quarter: 2025Q2

REPORT INFORMATION
  Report Type: Spontaneous
  Country: US (occurrence: US)
  Receive Date: 20250625
  Receipt Date: 20250626
  Transmission Date: 20250717
  Serious: Yes (Other)
  Sender: TEVA
  Company Number: US-TEVA-VS-3344168

PATIENT
  Age: 61 Year
  Sex: Female

DRUGS (1)
  1. COPAXONE [Suspect]
     Active Substance: GLATIRAMER ACETATE
     Indication: Product used for unknown indication
     Route: 065
     Dates: start: 2024, end: 2025

REACTIONS (5)
  - Magnetic resonance imaging abnormal [Unknown]
  - Drug ineffective [Unknown]
  - Dysstasia [Unknown]
  - Movement disorder [Unknown]
  - Gait disturbance [Unknown]
